FAERS Safety Report 17635684 (Version 1)
Quarter: 2020Q2

REPORT INFORMATION
  Report Type: Spontaneous
  Country: PT (occurrence: PT)
  Receive Date: 20200406
  Receipt Date: 20200406
  Transmission Date: 20200713
  Serious: Yes (Hospitalization, Other)
  Sender: FDA-Public Use
  Company Number: PT-DSJP-DSE-2020-110500

PATIENT

DRUGS (3)
  1. PRAVASTATIN SODIUM. [Suspect]
     Active Substance: PRAVASTATIN SODIUM
     Indication: DYSLIPIDAEMIA
     Dosage: UNK
     Route: 065
  2. OLMESARTAN MEDOXOMIL HYDROCHLOROTHIAZIDE [Suspect]
     Active Substance: HYDROCHLOROTHIAZIDE\OLMESARTAN MEDOXOMIL
     Indication: HYPERTENSION
     Dosage: UNK
     Route: 065
  3. DILTIAZEM. [Suspect]
     Active Substance: DILTIAZEM
     Indication: DYSLIPIDAEMIA
     Dosage: UNK
     Route: 065

REACTIONS (7)
  - Hypoalbuminaemia [Recovered/Resolved]
  - Acute kidney injury [Recovered/Resolved]
  - Fatigue [Recovered/Resolved]
  - Syncope [Unknown]
  - Sprue-like enteropathy [Recovered/Resolved]
  - Diarrhoea [Recovered/Resolved]
  - Weight decreased [Recovered/Resolved]
